FAERS Safety Report 12747530 (Version 1)
Quarter: 2016Q3

REPORT INFORMATION
  Report Type: Spontaneous
  Country: US (occurrence: US)
  Receive Date: 20160915
  Receipt Date: 20160915
  Transmission Date: 20161109
  Serious: No
  Sender: FDA-Public Use
  Company Number: US-JAZZ-2016-US-009858

PATIENT
  Sex: Male

DRUGS (23)
  1. NAMENDA [Concomitant]
     Active Substance: MEMANTINE HYDROCHLORIDE
  2. NUEDEXTA [Concomitant]
     Active Substance: DEXTROMETHORPHAN HYDROBROMIDE\QUINIDINE SULFATE
  3. RISPERIDONE. [Concomitant]
     Active Substance: RISPERIDONE
  4. TRAZODONE [Concomitant]
     Active Substance: TRAZODONE HYDROCHLORIDE
  5. CAPTOPRIL. [Concomitant]
     Active Substance: CAPTOPRIL
  6. XYREM [Suspect]
     Active Substance: SODIUM OXYBATE
     Indication: NARCOLEPSY
     Dosage: 4.5 G, BID
     Route: 048
     Dates: start: 200810, end: 2012
  7. ADDERALL XR [Concomitant]
     Active Substance: AMPHETAMINE ASPARTATE\AMPHETAMINE SULFATE\DEXTROAMPHETAMINE SACCHARATE\DEXTROAMPHETAMINE SULFATE
  8. LISINOPRIL. [Concomitant]
     Active Substance: LISINOPRIL
  9. VYVANSE [Concomitant]
     Active Substance: LISDEXAMFETAMINE DIMESYLATE
  10. PROVIGIL [Concomitant]
     Active Substance: MODAFINIL
  11. TESTIM [Concomitant]
     Active Substance: TESTOSTERONE
  12. SUBOXONE [Concomitant]
     Active Substance: BUPRENORPHINE HYDROCHLORIDE\NALOXONE HYDROCHLORIDE
  13. LAMICTAL [Concomitant]
     Active Substance: LAMOTRIGINE
  14. NUVIGIL [Concomitant]
     Active Substance: ARMODAFINIL
  15. XYREM [Suspect]
     Active Substance: SODIUM OXYBATE
     Dosage: 4.5 G, BID
     Route: 048
     Dates: start: 201411
  16. AMBIEN [Concomitant]
     Active Substance: ZOLPIDEM TARTRATE
  17. ANDROGEL [Concomitant]
     Active Substance: TESTOSTERONE
  18. TRILEPTAL [Concomitant]
     Active Substance: OXCARBAZEPINE
  19. ZYPREXA ZYDIS [Concomitant]
     Active Substance: OLANZAPINE
  20. MAXALT [Concomitant]
     Active Substance: RIZATRIPTAN BENZOATE
  21. ABILIFY [Concomitant]
     Active Substance: ARIPIPRAZOLE
  22. DEXILANT DR [Concomitant]
  23. PROPRANOLOL ER [Concomitant]

REACTIONS (1)
  - Unevaluable event [Unknown]
